FAERS Safety Report 6843018-1 (Version None)
Quarter: 2010Q3

REPORT INFORMATION
  Report Type: 
  Country: None (occurrence: None)
  Receive Date: 20100714
  Receipt Date: 20080429
  Transmission Date: 20110219
  Serious: No
  Sender: FDA-Public Use
  Company Number: US-PFIZER INC-2007066643

PATIENT
  Sex: Female
  Weight: 81.6 kg

DRUGS (4)
  1. CHANTIX [Suspect]
     Indication: SMOKING CESSATION THERAPY
     Route: 048
     Dates: start: 20070723, end: 20070806
  2. TOPROL-XL [Concomitant]
  3. AVALIDE [Concomitant]
  4. LIPITOR [Concomitant]

REACTIONS (6)
  - BACK PAIN [None]
  - NAUSEA [None]
  - PAIN IN EXTREMITY [None]
  - RASH [None]
  - VISION BLURRED [None]
  - VOMITING [None]
